FAERS Safety Report 14689122 (Version 2)
Quarter: 2020Q1

REPORT INFORMATION
  Report Type: Spontaneous
  Country: US (occurrence: US)
  Receive Date: 20180328
  Receipt Date: 20200212
  Transmission Date: 20200409
  Serious: Yes (Hospitalization, Other)
  Sender: FDA-Public Use
  Company Number: US-GLAXOSMITHKLINE-US2018GSK052360

PATIENT
  Sex: Male

DRUGS (3)
  1. PREVACID [Suspect]
     Active Substance: LANSOPRAZOLE
     Indication: GASTROOESOPHAGEAL REFLUX DISEASE
     Dosage: UNK
     Route: 065
  2. OMEPRAZOLE SODIUM [Suspect]
     Active Substance: OMEPRAZOLE SODIUM
     Indication: GASTROOESOPHAGEAL REFLUX DISEASE
     Dosage: UNK
     Route: 065
     Dates: start: 2016
  3. PREVACID [Suspect]
     Active Substance: LANSOPRAZOLE
     Indication: GASTROOESOPHAGEAL REFLUX DISEASE
     Dosage: UNK
     Route: 065
     Dates: start: 2009, end: 2014

REACTIONS (16)
  - Hydronephrosis [Unknown]
  - Nephrolithiasis [Unknown]
  - Ureteric stenosis [Unknown]
  - Perinephric oedema [Unknown]
  - Blood urine present [Unknown]
  - Nephropathy [Unknown]
  - Renal impairment [Unknown]
  - Renal failure [Unknown]
  - Renal disorder [Unknown]
  - Renal hypertension [Unknown]
  - Renal cyst [Unknown]
  - Chronic kidney disease [Unknown]
  - Ureterolithiasis [Unknown]
  - Ureteric obstruction [Unknown]
  - Acute kidney injury [Unknown]
  - Pyelocaliectasis [Unknown]
